FAERS Safety Report 15648449 (Version 3)
Quarter: 2018Q4

REPORT INFORMATION
  Report Type: Spontaneous
  Country: US (occurrence: US)
  Receive Date: 20181122
  Receipt Date: 20181207
  Transmission Date: 20190205
  Serious: No
  Sender: FDA-Public Use
  Company Number: US-PFIZER INC-2018474258

PATIENT
  Age: 61 Year
  Sex: Female
  Weight: 73 kg

DRUGS (4)
  1. LYRICA [Suspect]
     Active Substance: PREGABALIN
     Indication: FIBROMYALGIA
     Dosage: 75 MG, 2X/DAY
     Dates: start: 20181009, end: 2018
  2. LYRICA [Suspect]
     Active Substance: PREGABALIN
     Indication: NEURALGIA
     Dosage: 50 MG, 2X/DAY
     Route: 048
     Dates: start: 20181121
  3. LYRICA [Suspect]
     Active Substance: PREGABALIN
     Indication: BACK PAIN
  4. LYRICA [Suspect]
     Active Substance: PREGABALIN
     Indication: SPINAL CORD INJURY

REACTIONS (13)
  - Discomfort [Unknown]
  - Formication [Not Recovered/Not Resolved]
  - Anxiety [Unknown]
  - Insomnia [Recovered/Resolved]
  - Cortisol increased [Unknown]
  - Adrenal disorder [Not Recovered/Not Resolved]
  - Condition aggravated [Not Recovered/Not Resolved]
  - Hypoaesthesia oral [Unknown]
  - Muscle twitching [Unknown]
  - Muscle tightness [Unknown]
  - Pain in jaw [Not Recovered/Not Resolved]
  - Panic attack [Unknown]
  - Pain [Unknown]

NARRATIVE: CASE EVENT DATE: 2018
